FAERS Safety Report 21752363 (Version 1)
Quarter: 2022Q4

REPORT INFORMATION
  Report Type: Spontaneous
  Country: CN (occurrence: CN)
  Receive Date: 20221220
  Receipt Date: 20221220
  Transmission Date: 20230113
  Serious: Yes (Hospitalization)
  Sender: FDA-Public Use
  Company Number: None

PATIENT
  Age: 49 Year
  Sex: Female
  Weight: 47.8 kg

DRUGS (2)
  1. CYCLOPHOSPHAMIDE [Suspect]
     Active Substance: CYCLOPHOSPHAMIDE
     Indication: Lymphoma
     Dosage: 400 MG, ONCE DAILY, DILUTED WITH 250 ML OF GLUCOSE
     Route: 041
     Dates: start: 20221003, end: 20221003
  2. DEXTROSE [Suspect]
     Active Substance: DEXTROSE
     Indication: Medication dilution
     Dosage: 250 ML, ONCE DAILY, USED TO DILUTE 400 MG OF CYCLOPHOSPHAMIDE
     Route: 041
     Dates: start: 20221003, end: 20221003

REACTIONS (4)
  - Electrolyte imbalance [Recovering/Resolving]
  - Blood glucose abnormal [Recovering/Resolving]
  - Hyperuricaemia [Recovering/Resolving]
  - Metabolic disorder [Recovering/Resolving]

NARRATIVE: CASE EVENT DATE: 20221003
